FAERS Safety Report 7505651-3 (Version None)
Quarter: 2011Q2

REPORT INFORMATION
  Report Type: 
  Country: None (occurrence: None)
  Receive Date: 20110404
  Receipt Date: 20100211
  Transmission Date: 20111010
  Serious: Yes (Other)
  Sender: FDA-Public Use
  Company Number: 008852

PATIENT
  Age: 1 Year
  Sex: Male

DRUGS (3)
  1. CYCLOPHOSPHAMIDE [Concomitant]
  2. BUSULFEX [Suspect]
     Indication: STEM CELL TRANSPLANT
     Dosage: Q6HR, INTRAVENOUS
     Route: 042
  3. PHENYTOIN [Concomitant]

REACTIONS (2)
  - VENOOCCLUSIVE DISEASE [None]
  - ACUTE GRAFT VERSUS HOST DISEASE IN SKIN [None]
